FAERS Safety Report 8511490-7 (Version None)
Quarter: 2012Q3

REPORT INFORMATION
  Report Type: 
  Country: None (occurrence: None)
  Receive Date: 20120711
  Receipt Date: 20120711
  Transmission Date: 20120928
  Serious: No
  Sender: FDA-Public Use
  Company Number: None

PATIENT
  Age: 73 Year
  Sex: Female
  Weight: 92.0802 kg

DRUGS (1)
  1. CARDIZEM CD [Suspect]
     Indication: HYPERTENSION
     Dosage: 120 MG. X1, DAILY P.O.
     Route: 048
     Dates: start: 20120524, end: 20120531

REACTIONS (4)
  - PRURITUS [None]
  - CHEST DISCOMFORT [None]
  - PRODUCT QUALITY ISSUE [None]
  - PRODUCT SUBSTITUTION ISSUE [None]
